FAERS Safety Report 10088367 (Version 3)
Quarter: 2014Q2

REPORT INFORMATION
  Report Type: Spontaneous
  Country: IT (occurrence: IT)
  Receive Date: 20140421
  Receipt Date: 20140625
  Transmission Date: 20141212
  Serious: Yes (Hospitalization)
  Sender: FDA-Public Use
  Company Number: IT-AMGEN-ITASP2014028040

PATIENT
  Age: 67 Year
  Sex: Female

DRUGS (14)
  1. FILGRASTIM [Suspect]
     Indication: CHRONIC LYMPHOCYTIC LEUKAEMIA
     Dosage: UNK
     Route: 058
     Dates: start: 20140301, end: 20140303
  2. ETAMIDON [Suspect]
     Indication: PRODUCT USED FOR UNKNOWN INDICATION
     Dosage: 300 MG, DAILY
     Route: 048
     Dates: start: 20131201, end: 20140303
  3. POTASSIUM HYDROXIDE [Suspect]
     Indication: PRODUCT USED FOR UNKNOWN INDICATION
     Dosage: 300 MG, DAILY
     Route: 048
     Dates: start: 20131201, end: 20140303
  4. SODIUM HYDROXIDE [Suspect]
     Indication: PRODUCT USED FOR UNKNOWN INDICATION
     Dosage: 300 MG, DAILY
     Route: 048
     Dates: start: 20131201, end: 20140303
  5. ADENOSINE [Suspect]
     Indication: PRODUCT USED FOR UNKNOWN INDICATION
     Dosage: 300 MG, DAILY
     Route: 048
     Dates: start: 20131201, end: 20140303
  6. ALLOPURINOL [Suspect]
     Indication: PRODUCT USED FOR UNKNOWN INDICATION
     Dosage: 300 MG, DAILY
     Route: 048
     Dates: start: 20131201, end: 20140303
  7. POTASSIUM PHOSPHATE MONOBASIC [Suspect]
     Indication: PRODUCT USED FOR UNKNOWN INDICATION
     Dosage: 300 MG, DAILY
     Route: 048
     Dates: start: 20131201, end: 20140303
  8. MAGNESIUM SULFATE HEPTAHYDRATE [Suspect]
     Indication: PRODUCT USED FOR UNKNOWN INDICATION
     Dosage: 300 MG, DAILY
     Route: 048
     Dates: start: 20131201, end: 20140303
  9. GLUTATHIONE [Suspect]
     Indication: PRODUCT USED FOR UNKNOWN INDICATION
     Dosage: 300 MG, DAILY
     Route: 048
     Dates: start: 20131201, end: 20140303
  10. TORVAST [Concomitant]
     Dosage: 10 MG, UNK
     Route: 048
  11. MEPRAL                             /00661201/ [Concomitant]
     Dosage: 20 MG, UNK
     Route: 048
  12. EUTIROX [Concomitant]
     Dosage: 25 MCG, UNK
     Route: 048
  13. DIFLUCAN [Concomitant]
     Dosage: 200 MG, UNK
     Route: 048
  14. BISOPROLOL HEMIFUMARATE [Concomitant]
     Dosage: 125 MUG, UNK
     Route: 048

REACTIONS (1)
  - Urticaria [Recovered/Resolved]
